FAERS Safety Report 24567229 (Version 1)
Quarter: 2024Q4

REPORT INFORMATION
  Report Type: Spontaneous
  Country: US (occurrence: US)
  Receive Date: 20241030
  Receipt Date: 20241030
  Transmission Date: 20250114
  Serious: Yes (Other)
  Sender: DEVA
  Company Number: US-DEVA-2024-US-057863

PATIENT
  Age: 70 Year
  Sex: Female

DRUGS (1)
  1. FUROSEMIDE [Suspect]
     Active Substance: FUROSEMIDE
     Indication: Renal failure

REACTIONS (1)
  - Acute febrile neutrophilic dermatosis [Unknown]
